FAERS Safety Report 8313673-8 (Version None)
Quarter: 2012Q2

REPORT INFORMATION
  Report Type: 
  Country: None (occurrence: None)
  Receive Date: 20120426
  Receipt Date: 20120420
  Transmission Date: 20120825
  Serious: Yes (Hospitalization, Other)
  Sender: FDA-Public Use
  Company Number: CA-ELI_LILLY_AND_COMPANY-CA201202005336

PATIENT
  Age: 68 Year
  Sex: Male

DRUGS (4)
  1. CIALIS [Suspect]
     Dosage: 20 MG, UNK
     Dates: start: 20120211
  2. PANTOPRAZOLE [Concomitant]
     Dosage: 40 MG, TID
  3. CIALIS [Suspect]
     Indication: ERECTILE DYSFUNCTION
     Dosage: 5 MG, QD
     Dates: start: 20110831
  4. CIALIS [Suspect]
     Dosage: 20 MG, UNK

REACTIONS (3)
  - DIVERTICULUM INTESTINAL HAEMORRHAGIC [None]
  - DRUG INEFFECTIVE [None]
  - HAEMATOCHEZIA [None]
